FAERS Safety Report 20555552 (Version 1)
Quarter: 2022Q1

REPORT INFORMATION
  Report Type: Spontaneous
  Country: CA (occurrence: CA)
  Receive Date: 20220304
  Receipt Date: 20220304
  Transmission Date: 20220423
  Serious: Yes (Other)
  Sender: FDA-Public Use
  Company Number: CA-PFIZER INC-202200348590

PATIENT
  Age: 21 Year
  Sex: Male

DRUGS (1)
  1. METHOTREXATE SODIUM [Suspect]
     Active Substance: METHOTREXATE SODIUM
     Dosage: 25 MG, WEEKLY
     Route: 058
     Dates: start: 202101

REACTIONS (24)
  - Diarrhoea haemorrhagic [Recovered/Resolved]
  - Abscess intestinal [Unknown]
  - Inflammatory bowel disease [Unknown]
  - Drug ineffective [Unknown]
  - Off label use [Unknown]
  - Frequent bowel movements [Unknown]
  - Abdominal pain [Unknown]
  - Nausea [Recovered/Resolved]
  - Vomiting [Recovered/Resolved]
  - Dehydration [Recovered/Resolved]
  - Symptom recurrence [Unknown]
  - Weight decreased [Unknown]
  - Aphthous ulcer [Unknown]
  - Enteritis [Unknown]
  - Colitis [Unknown]
  - Cryptitis [Unknown]
  - Iron deficiency anaemia [Unknown]
  - Lymphadenopathy [Unknown]
  - Gastrointestinal hypomotility [Unknown]
  - Mucosal hypertrophy [Unknown]
  - Hepatomegaly [Unknown]
  - Lymphadenopathy [Unknown]
  - Hiatus hernia [Unknown]
  - Gastritis [Unknown]

NARRATIVE: CASE EVENT DATE: 20210201
